FAERS Safety Report 8339860-0 (Version None)
Quarter: 2012Q2

REPORT INFORMATION
  Report Type: 
  Country: None (occurrence: None)
  Receive Date: 20120507
  Receipt Date: 20120427
  Transmission Date: 20120825
  Serious: Yes (Other)
  Sender: FDA-Public Use
  Company Number: FR-PFIZER INC-2012108765

PATIENT
  Age: 84 Year
  Sex: Female

DRUGS (10)
  1. LOVENOX [Suspect]
     Indication: PRODUCT USED FOR UNKNOWN INDICATION
     Dosage: 0.4 ML, DAILY
     Route: 058
     Dates: start: 20110412
  2. AUGMENTIN [Suspect]
     Indication: LUNG DISORDER
     Dosage: 1 UNIT THRICE DAILY
     Dates: start: 20110412
  3. PRAZEPAM [Concomitant]
     Dosage: UNK
  4. CORDARONE [Suspect]
     Indication: TACHYCARDIA
     Dosage: 2 UNITS, DAILY
     Route: 048
     Dates: start: 20110412, end: 20110419
  5. RAMIPRIL [Suspect]
     Indication: PRODUCT USED FOR UNKNOWN INDICATION
     Dosage: 1.25 MG, DAILY
     Route: 048
     Dates: start: 20110422
  6. ASPIRIN [Suspect]
     Indication: PRODUCT USED FOR UNKNOWN INDICATION
     Dosage: 75 MG, DAILY (1 UNIT DAILY)
     Route: 048
     Dates: start: 20110417
  7. IMOVANE [Concomitant]
     Dosage: UNK
  8. BISOPROLOL FUMARATE [Suspect]
     Indication: PRODUCT USED FOR UNKNOWN INDICATION
     Dosage: 5 MG, DAILY (1/2 UNIT DAILY)
     Route: 048
     Dates: start: 20110419
  9. DEPAKENE [Suspect]
     Indication: CONVULSION
     Dosage: 500 MG TWICE DAILY IN DROPS
     Route: 048
     Dates: start: 20110412
  10. CORDARONE [Suspect]
     Dosage: 1 UNIT DAILY
     Route: 048
     Dates: start: 20110420

REACTIONS (1)
  - HYPONATRAEMIA [None]
